FAERS Safety Report 10031850 (Version 1)
Quarter: 2014Q1

REPORT INFORMATION
  Report Type: Spontaneous
  Country: US (occurrence: US)
  Receive Date: 20140324
  Receipt Date: 20140324
  Transmission Date: 20141002
  Serious: No
  Sender: FDA-Public Use
  Company Number: US-BAYER-2014-042689

PATIENT
  Age: 36 Year
  Sex: Female
  Weight: 105.67 kg

DRUGS (2)
  1. ALEVE TABLET [Suspect]
     Indication: ARTHRALGIA
     Dosage: UNK DF, PRN
     Route: 048
     Dates: start: 201311
  2. TRAMADOL [Concomitant]

REACTIONS (1)
  - Drug ineffective [None]
